FAERS Safety Report 9762880 (Version 1)
Quarter: 2013Q4

REPORT INFORMATION
  Report Type: Report from Study
  Country: BR (occurrence: BR)
  Receive Date: 20131216
  Receipt Date: 20131216
  Transmission Date: 20140711
  Serious: Yes (Death, Hospitalization, Other)
  Sender: FDA-Public Use
  Company Number: PHHY2013BR145799

PATIENT
  Sex: Female
  Weight: 73 kg

DRUGS (4)
  1. EXELON [Suspect]
     Indication: DEMENTIA ALZHEIMER^S TYPE
     Dosage: 3 MG, BID (IN MORNING AND NIGHT)
     Route: 048
  2. FORASEQ [Suspect]
     Indication: BRONCHITIS
     Dosage: UNK UKN, BID (IN THE MORNING AND AT NIGHT)
  3. FORASEQ [Suspect]
     Indication: ASTHMA
  4. INSULIN [Concomitant]
     Indication: DIABETES MELLITUS
     Dosage: UNK UKN, UNK
     Dates: start: 2011

REACTIONS (8)
  - Cerebrovascular accident [Fatal]
  - Ischaemia [Fatal]
  - Malaise [Fatal]
  - Dementia Alzheimer^s type [Fatal]
  - Lung disorder [Fatal]
  - Cough [Fatal]
  - Dysphagia [Unknown]
  - Aspiration bronchial [Unknown]
